FAERS Safety Report 9802748 (Version 1)
Quarter: 2014Q1

REPORT INFORMATION
  Report Type: Report from Study
  Country: US (occurrence: US)
  Receive Date: 20140108
  Receipt Date: 20140108
  Transmission Date: 20141002
  Serious: Yes (Death)
  Sender: FDA-Public Use
  Company Number: US-ROCHE-1330577

PATIENT
  Sex: Male
  Weight: 77.7 kg

DRUGS (8)
  1. AVASTIN [Suspect]
     Indication: PANCREATIC CARCINOMA
     Route: 042
  2. GEMCITABINE HCL [Concomitant]
     Route: 042
  3. METOCLOPRAMIDE [Concomitant]
     Dosage: Q 4 PRN
     Route: 042
  4. NORVASC [Concomitant]
     Route: 048
  5. ONDANSETRON [Concomitant]
     Route: 042
  6. DEXAMETHASONE [Concomitant]
     Route: 042
  7. ABRAXANE [Concomitant]
  8. NACL .9% [Concomitant]
     Route: 065

REACTIONS (1)
  - Death [Fatal]
